FAERS Safety Report 19074069 (Version 1)
Quarter: 2021Q1

REPORT INFORMATION
  Report Type: Spontaneous
  Country: US (occurrence: US)
  Receive Date: 20210330
  Receipt Date: 20210330
  Transmission Date: 20210420
  Serious: Yes (Other)
  Sender: FDA-Public Use
  Company Number: US-ASTRAZENECA-2021A188176

PATIENT
  Age: 17065 Day
  Sex: Male
  Weight: 162.8 kg

DRUGS (22)
  1. LEVEMIR [Concomitant]
     Active Substance: INSULIN DETEMIR
  2. MELATONIN [Concomitant]
     Active Substance: MELATONIN
  3. LISINOPRIL. [Concomitant]
     Active Substance: LISINOPRIL
  4. AMOXICILLIN. [Concomitant]
     Active Substance: AMOXICILLIN
  5. AZITHROMYCIN ANHYDROUS. [Concomitant]
     Active Substance: AZITHROMYCIN ANHYDROUS
  6. KETOROLAC [Concomitant]
     Active Substance: KETOROLAC TROMETHAMINE
  7. DEXTROSE. [Concomitant]
     Active Substance: DEXTROSE
  8. TRAMADOL. [Concomitant]
     Active Substance: TRAMADOL
  9. JENTADUETO [Concomitant]
     Active Substance: LINAGLIPTIN\METFORMIN HYDROCHLORIDE
  10. BYDUREON [Concomitant]
     Active Substance: EXENATIDE
  11. TRAMADOL. [Concomitant]
     Active Substance: TRAMADOL
  12. SODIUM SULPHATE [Concomitant]
  13. LEVOFLOXACIN. [Concomitant]
     Active Substance: LEVOFLOXACIN
  14. TYLENOL [Concomitant]
     Active Substance: ACETAMINOPHEN
  15. FARXIGA [Suspect]
     Active Substance: DAPAGLIFLOZIN PROPANEDIOL
     Route: 048
     Dates: start: 20141119
  16. ATORVASTATIN [Concomitant]
     Active Substance: ATORVASTATIN
  17. PHENYLEPHRINE [Concomitant]
     Active Substance: PHENYLEPHRINE HYDROCHLORIDE
  18. ONDANSETRON [Concomitant]
     Active Substance: ONDANSETRON
  19. PIPERACILLIN. [Concomitant]
     Active Substance: PIPERACILLIN SODIUM
  20. MORPHINE SULPHATE [Concomitant]
     Active Substance: MORPHINE SULFATE
  21. ONDANSETRON [Concomitant]
     Active Substance: ONDANSETRON
  22. DAPAGLIFLOZIN. [Concomitant]
     Active Substance: DAPAGLIFLOZIN

REACTIONS (18)
  - Erythema [Unknown]
  - Obesity [Unknown]
  - Hyperlipidaemia [Unknown]
  - Inflammation [Unknown]
  - Groin pain [Unknown]
  - Abdominal pain lower [Unknown]
  - Fournier^s gangrene [Unknown]
  - Scrotal abscess [Unknown]
  - Groin abscess [Unknown]
  - Scrotal swelling [Unknown]
  - Perineal abscess [Unknown]
  - Type 2 diabetes mellitus [Unknown]
  - Essential hypertension [Unknown]
  - Rash [Unknown]
  - Lumbar spinal stenosis [Unknown]
  - Hypertension [Unknown]
  - Diabetes mellitus [Unknown]
  - Cellulitis [Unknown]

NARRATIVE: CASE EVENT DATE: 20170617
